FAERS Safety Report 13590875 (Version 7)
Quarter: 2018Q3

REPORT INFORMATION
  Report Type: Report from Study
  Country: US (occurrence: US)
  Receive Date: 20170530
  Receipt Date: 20180718
  Transmission Date: 20181010
  Serious: Yes (Other)
  Sender: FDA-Public Use
  Company Number: PHHY2017US079682

PATIENT
  Age: 9 Year
  Sex: Female

DRUGS (36)
  1. TOBI [Suspect]
     Active Substance: TOBRAMYCIN
     Dosage: 300 OT, BID
     Route: 055
     Dates: start: 20170328
  2. CAYSTON [Suspect]
     Active Substance: AZTREONAM
     Dosage: 75 OT, TID
     Route: 065
     Dates: start: 20170214, end: 20170314
  3. VENTOLIN HFA [Concomitant]
     Active Substance: ALBUTEROL SULFATE
     Indication: CYSTIC FIBROSIS LUNG
     Dosage: UNK
     Route: 065
     Dates: start: 20110606
  4. ALBUTEROL. [Concomitant]
     Active Substance: ALBUTEROL
     Indication: CYSTIC FIBROSIS LUNG
     Dosage: UNK
     Route: 065
     Dates: start: 20110613
  5. SINGULAIR [Concomitant]
     Active Substance: MONTELUKAST SODIUM
     Indication: RHINITIS ALLERGIC
     Dosage: UNK
     Route: 065
     Dates: start: 20121205
  6. MEPHYTON [Concomitant]
     Active Substance: PHYTONADIONE
     Indication: SUPPLEMENTATION THERAPY
     Dosage: UNK
     Route: 065
     Dates: start: 20170914
  7. CAYSTON [Suspect]
     Active Substance: AZTREONAM
     Indication: PRODUCT USED FOR UNKNOWN INDICATION
     Dosage: 75 OT, TID
     Route: 065
     Dates: start: 20161109, end: 20161206
  8. PANCRELIPASE. [Concomitant]
     Active Substance: PANCRELIPASE
     Indication: PANCREATIC FAILURE
     Dosage: UNK
     Route: 065
     Dates: start: 20070706
  9. ALLEGRA [Concomitant]
     Active Substance: FEXOFENADINE HYDROCHLORIDE
     Indication: RHINITIS ALLERGIC
     Dosage: UNK
     Route: 065
     Dates: start: 20150513
  10. TAMIFLU [Concomitant]
     Active Substance: OSELTAMIVIR PHOSPHATE
     Indication: PROPHYLAXIS
     Dosage: UNK
     Route: 065
     Dates: start: 20170324, end: 20170329
  11. TOBI PODHALER [Suspect]
     Active Substance: TOBRAMYCIN
     Indication: PSEUDOMONAS INFECTION
     Dosage: 112 OT, BID
     Route: 055
     Dates: start: 20161207, end: 20170103
  12. TOBI PODHALER [Suspect]
     Active Substance: TOBRAMYCIN
     Dosage: 112 OT, BID
     Route: 055
     Dates: start: 20170601, end: 20170628
  13. TOBI [Suspect]
     Active Substance: TOBRAMYCIN
     Dosage: 300 OT, BID
     Route: 055
     Dates: start: 20170401, end: 20170428
  14. CAYSTON [Suspect]
     Active Substance: AZTREONAM
     Dosage: 75 OT, TID
     Route: 065
     Dates: start: 20170108
  15. BETHKIS [Suspect]
     Active Substance: TOBRAMYCIN
     Dosage: 300 OT, BID
     Route: 065
     Dates: start: 20161201, end: 20161228
  16. TAMIFLU [Concomitant]
     Active Substance: OSELTAMIVIR PHOSPHATE
     Indication: INFLUENZA
     Dosage: UNK
     Route: 065
     Dates: start: 20161221, end: 20161230
  17. ZYVOX [Concomitant]
     Active Substance: LINEZOLID
     Indication: CELLULITIS STAPHYLOCOCCAL
     Dosage: UNK
     Route: 065
     Dates: start: 20171207, end: 20171220
  18. BETHKIS [Suspect]
     Active Substance: TOBRAMYCIN
     Dosage: 300 OT, BID
     Route: 065
     Dates: start: 20170201, end: 20170228
  19. TOBI PODHALER [Suspect]
     Active Substance: TOBRAMYCIN
     Dosage: 112 OT, BID
     Route: 055
     Dates: start: 20171001, end: 20171028
  20. TOBI [Suspect]
     Active Substance: TOBRAMYCIN
     Indication: PSEUDOMONAS INFECTION
     Dosage: 300 OT, BID
     Route: 055
     Dates: start: 20170201, end: 20170228
  21. OPTIVAR [Concomitant]
     Active Substance: AZELASTINE HYDROCHLORIDE
     Indication: RHINITIS ALLERGIC
     Dosage: UNK
     Route: 065
     Dates: start: 20130513
  22. TOBI PODHALER [Suspect]
     Active Substance: TOBRAMYCIN
     Dosage: 112 OT, BID
     Route: 055
     Dates: start: 20170317, end: 20170412
  23. TOBI PODHALER [Suspect]
     Active Substance: TOBRAMYCIN
     Dosage: 112 OT, BID
     Route: 055
     Dates: start: 20171206, end: 20180102
  24. MIRALAX [Concomitant]
     Active Substance: POLYETHYLENE GLYCOL 3350
     Indication: CONSTIPATION
     Dosage: UNK
     Route: 065
     Dates: start: 20121003
  25. AZITHROMYCIN ANHYDROUS. [Concomitant]
     Active Substance: AZITHROMYCIN ANHYDROUS
     Indication: PSEUDOMONAS INFECTION
     Dosage: UNK
     Route: 065
     Dates: start: 20150114
  26. TOBI PODHALER [Suspect]
     Active Substance: TOBRAMYCIN
     Dosage: 112 OT, BID
     Route: 055
     Dates: start: 20170801, end: 20170828
  27. TOBI [Suspect]
     Active Substance: TOBRAMYCIN
     Indication: CYSTIC FIBROSIS
     Dosage: 300 OT, BID
     Route: 055
     Dates: start: 20161202, end: 20161230
  28. BETHKIS [Suspect]
     Active Substance: TOBRAMYCIN
     Indication: PRODUCT USED FOR UNKNOWN INDICATION
     Dosage: UNK
     Route: 065
  29. PREVACID [Concomitant]
     Active Substance: LANSOPRAZOLE
     Indication: GASTROOESOPHAGEAL REFLUX DISEASE
     Dosage: UNK
     Route: 065
     Dates: start: 20140715
  30. BACTRIM [Concomitant]
     Active Substance: SULFAMETHOXAZOLE\TRIMETHOPRIM
     Indication: CELLULITIS STAPHYLOCOCCAL
     Dosage: UNK
     Route: 065
     Dates: start: 20160802
  31. FLOVENT HFA [Concomitant]
     Active Substance: FLUTICASONE PROPIONATE
     Indication: CYSTIC FIBROSIS LUNG
     Dosage: UNK
     Route: 065
     Dates: start: 20110511, end: 20170329
  32. TOBI PODHALER [Suspect]
     Active Substance: TOBRAMYCIN
     Indication: CYSTIC FIBROSIS
     Dosage: 112 OT, BID
     Route: 055
     Dates: start: 20161102, end: 20161108
  33. HYPERSAL [Concomitant]
     Indication: CYSTIC FIBROSIS LUNG
     Dosage: UNK
     Route: 065
     Dates: start: 20110622
  34. PEDIASURE [Concomitant]
     Active Substance: VITAMINS
     Indication: SUPPLEMENTATION THERAPY
     Dosage: UNK
     Route: 065
     Dates: start: 20110901, end: 20170329
  35. AQUADEKS [Concomitant]
     Active Substance: MINERALS\VITAMINS
     Indication: SUPPLEMENTATION THERAPY
     Dosage: UNK
     Route: 065
     Dates: start: 20160518
  36. FLOVENT HFA [Concomitant]
     Active Substance: FLUTICASONE PROPIONATE
     Dosage: 100 MCG/ML, UNK
     Route: 065
     Dates: start: 20171207

REACTIONS (4)
  - Infective pulmonary exacerbation of cystic fibrosis [Recovered/Resolved]
  - Abdominal pain upper [Recovered/Resolved]
  - Influenza [Recovered/Resolved]
  - Infective pulmonary exacerbation of cystic fibrosis [Recovered/Resolved]

NARRATIVE: CASE EVENT DATE: 20161109
